FAERS Safety Report 25166606 (Version 1)
Quarter: 2025Q2

REPORT INFORMATION
  Report Type: Spontaneous
  Country: JP (occurrence: JP)
  Receive Date: 20250407
  Receipt Date: 20250407
  Transmission Date: 20250717
  Serious: Yes (Hospitalization)
  Sender: MACLEODS
  Company Number: JP-MACLEODS PHARMA-MAC2025052478

PATIENT

DRUGS (8)
  1. LACOSAMIDE [Suspect]
     Active Substance: LACOSAMIDE
     Indication: Product used for unknown indication
     Route: 065
  2. TRAZODONE [Suspect]
     Active Substance: TRAZODONE HYDROCHLORIDE
     Indication: Product used for unknown indication
     Route: 065
  3. ALPRAZOLAM [Suspect]
     Active Substance: ALPRAZOLAM
     Indication: Product used for unknown indication
     Route: 065
  4. MIRTAZAPINE [Suspect]
     Active Substance: MIRTAZAPINE
     Indication: Product used for unknown indication
     Route: 065
  5. LEMBOREXANT [Suspect]
     Active Substance: LEMBOREXANT
     Indication: Product used for unknown indication
     Route: 065
  6. LEVODOPA [Suspect]
     Active Substance: LEVODOPA
     Indication: Product used for unknown indication
     Route: 065
  7. CARBAMAZEPINE [Concomitant]
     Active Substance: CARBAMAZEPINE
     Indication: Product used for unknown indication
     Route: 065
  8. LAMOTRIGINE [Concomitant]
     Active Substance: LAMOTRIGINE
     Indication: Product used for unknown indication
     Route: 065

REACTIONS (14)
  - Shock [Recovered/Resolved]
  - Respiratory acidosis [Unknown]
  - Electrocardiogram QRS complex prolonged [Recovered/Resolved]
  - Electrocardiogram PR prolongation [Recovered/Resolved]
  - Electrocardiogram QT prolonged [Recovered/Resolved]
  - Ventricular extrasystoles [Unknown]
  - Nodal rhythm [Unknown]
  - Glossoptosis [Unknown]
  - Altered state of consciousness [Unknown]
  - Toxicity to various agents [Recovered/Resolved]
  - Intentional overdose [Unknown]
  - Coma [Unknown]
  - Suicide attempt [Unknown]
  - Bradycardia [Recovered/Resolved]
